FAERS Safety Report 10478692 (Version 2)
Quarter: 2014Q4

REPORT INFORMATION
  Report Type: Spontaneous
  Country: US (occurrence: None)
  Receive Date: 20140924
  Receipt Date: 20141021
  Transmission Date: 20150528
  Serious: Yes (Other)
  Sender: FDA-Public Use
  Company Number: QSC-2014-0633

PATIENT
  Age: 20 Year
  Sex: Female
  Weight: 75.7 kg

DRUGS (1)
  1. H.P. ACTHAR [Suspect]
     Active Substance: CORTICOTROPIN
     Indication: OPTIC NEURITIS
     Dosage: 80 UNITS
     Route: 030
     Dates: start: 201408, end: 201408

REACTIONS (3)
  - Maternal drugs affecting foetus [None]
  - Nasopharyngitis [None]
  - Abortion spontaneous [None]

NARRATIVE: CASE EVENT DATE: 20140908
